FAERS Safety Report 9770864 (Version 2)
Quarter: 2014Q1

REPORT INFORMATION
  Report Type: Spontaneous
  Country: US (occurrence: US)
  Receive Date: 20131218
  Receipt Date: 20140317
  Transmission Date: 20141002
  Serious: No
  Sender: FDA-Public Use
  Company Number: US-BIOGENIDEC-2013BI119722

PATIENT
  Age: 52 Year
  Sex: Female

DRUGS (14)
  1. TECFIDERA [Suspect]
     Indication: MULTIPLE SCLEROSIS
  2. TECFIDERA [Suspect]
     Indication: MULTIPLE SCLEROSIS
  3. TECFIDERA [Suspect]
     Indication: MULTIPLE SCLEROSIS
  4. TECFIDERA [Suspect]
     Indication: MULTIPLE SCLEROSIS
     Dates: start: 20130618
  5. TECFIDERA [Suspect]
     Indication: MULTIPLE SCLEROSIS
     Route: 048
     Dates: start: 20140130
  6. BUTALBITAL-ASA-CAFFEINE [Concomitant]
  7. BUTORPHANOL TARTRATE [Concomitant]
  8. KETOROLAC [Concomitant]
  9. TROMETHAMINE [Concomitant]
  10. MORPHINE SULFATE ER [Concomitant]
  11. OXCARBAZEPINE [Concomitant]
  12. PROMETHAZINE HCL [Concomitant]
  13. TEMAZEPAM [Concomitant]
  14. VISTARIL [Concomitant]

REACTIONS (7)
  - Gastric disorder [Recovered/Resolved]
  - Lip blister [Not Recovered/Not Resolved]
  - Lip exfoliation [Not Recovered/Not Resolved]
  - Chapped lips [Not Recovered/Not Resolved]
  - Lip pain [Not Recovered/Not Resolved]
  - Underdose [Unknown]
  - Oral disorder [Not Recovered/Not Resolved]
